FAERS Safety Report 7141555-6 (Version None)
Quarter: 2010Q4

REPORT INFORMATION
  Report Type: 
  Country: None (occurrence: None)
  Receive Date: 20101119
  Receipt Date: 20100513
  Transmission Date: 20110411
  Serious: Yes (Hospitalization)
  Sender: FDA-Public Use
  Company Number: UTC-001019

PATIENT
  Age: 75 Year
  Sex: Female
  Weight: 63 kg

DRUGS (10)
  1. TYVASO [Suspect]
     Indication: PULMONARY ARTERIAL HYPERTENSION
     Dosage: (60 MCG, 1 D), INHALATION
     Route: 055
     Dates: start: 20091104, end: 20100326
  2. TRACLEER [Concomitant]
  3. REVATIO [Concomitant]
  4. ADVAIR HFA [Concomitant]
  5. LANTUS [Concomitant]
  6. NOVOLOG [Concomitant]
  7. TOPROL-XL [Concomitant]
  8. PROTONIX [Concomitant]
  9. SYNTHROID [Concomitant]
  10. LIPITOR [Concomitant]

REACTIONS (1)
  - PNEUMONIA [None]
